FAERS Safety Report 14912529 (Version 1)
Quarter: 2018Q2

REPORT INFORMATION
  Report Type: Spontaneous
  Country: GB (occurrence: GB)
  Receive Date: 20180501
  Receipt Date: 20180501
  Transmission Date: 20180711
  Serious: Yes (Disabling)
  Sender: FDA-Public Use
  Company Number: None

PATIENT
  Age: 43 Year
  Sex: Female
  Weight: 67.5 kg

DRUGS (6)
  1. DIAZEPAM. [Suspect]
     Active Substance: DIAZEPAM
     Indication: ANXIETY
     Route: 048
  2. CO CODOMOL [Concomitant]
  3. HRT PATCH [Concomitant]
  4. RIVOROXABAM [Concomitant]
  5. EVACAL D3 [Concomitant]
  6. MIRTAZAPINE. [Concomitant]
     Active Substance: MIRTAZAPINE

REACTIONS (14)
  - Paraesthesia [None]
  - Fibromyalgia [None]
  - Disturbance in attention [None]
  - Anxiety [None]
  - Osteopenia [None]
  - Feeling abnormal [None]
  - Suicidal ideation [None]
  - Agoraphobia [None]
  - Osteoporosis [None]
  - Intrusive thoughts [None]
  - Intentional overdose [None]
  - Depression [None]
  - Nerve injury [None]
  - Withdrawal syndrome [None]

NARRATIVE: CASE EVENT DATE: 20141111
